FAERS Safety Report 4532133-3 (Version None)
Quarter: 2004Q4

REPORT INFORMATION
  Report Type: 
  Country: None (occurrence: None)
  Receive Date: 20041217
  Receipt Date: 20041214
  Transmission Date: 20050328
  Serious: Yes (Other)
  Sender: FDA-Public Use
  Company Number: 200410610BYL

PATIENT
  Age: 77 Year
  Sex: Male

DRUGS (10)
  1. ADALAT [Suspect]
     Dosage: 20 MG , BID, ORAL
     Route: 048
     Dates: end: 20040917
  2. TSUMURA SHOU SEI RYUTO [Concomitant]
  3. DOGAMTYL [Concomitant]
  4. AMOXAN [Concomitant]
  5. ANAFRANIL [Concomitant]
  6. SENIRAN [Concomitant]
  7. EVAMYL [Concomitant]
  8. TRYPTANOL [Concomitant]
  9. PARAMIDIN [Concomitant]
  10. LASIX [Concomitant]

REACTIONS (3)
  - EPISTAXIS [None]
  - GINGIVAL BLEEDING [None]
  - OVERDOSE [None]
